FAERS Safety Report 15736219 (Version 1)
Quarter: 2018Q4

REPORT INFORMATION
  Report Type: Spontaneous
  Country: US (occurrence: US)
  Receive Date: 20181203
  Receipt Date: 20181203
  Transmission Date: 20190205
  Serious: No
  Sender: FDA-Public Use
  Company Number: None

PATIENT
  Age: 18 Year
  Sex: Male

DRUGS (1)
  1. TACROLIMUS CAP 0.5MG [Suspect]
     Active Substance: TACROLIMUS
     Dosage: ?          OTHER DOSE:2.5MG QAM + 3MG Q;?
     Route: 048
     Dates: start: 201309, end: 201701

REACTIONS (3)
  - Dizziness [None]
  - Palpitations [None]
  - Tremor [None]

NARRATIVE: CASE EVENT DATE: 20181125
